FAERS Safety Report 18081535 (Version 6)
Quarter: 2021Q2

REPORT INFORMATION
  Report Type: Report from Study
  Country: US (occurrence: US)
  Receive Date: 20200728
  Receipt Date: 20210626
  Transmission Date: 20210717
  Serious: No
  Sender: FDA-Public Use
  Company Number: NVSC2020US208405

PATIENT
  Age: 78 Year
  Sex: Male

DRUGS (1)
  1. ENTRESTO [Suspect]
     Active Substance: SACUBITRIL\VALSARTAN
     Indication: CARDIAC FAILURE
     Dosage: 50 MG, OTHER (24.26 MG,HALF IN THE MORNING AND HALF AT NIGHT)
     Route: 048
     Dates: start: 20200711

REACTIONS (6)
  - Therapeutic response unexpected [Unknown]
  - Wheezing [Unknown]
  - Cough [Not Recovered/Not Resolved]
  - Choking sensation [Unknown]
  - Wrong technique in product usage process [Unknown]
  - Insomnia [Unknown]

NARRATIVE: CASE EVENT DATE: 20200711
